FAERS Safety Report 7203552-1 (Version None)
Quarter: 2010Q4

REPORT INFORMATION
  Report Type: 
  Country: None (occurrence: None)
  Receive Date: 20101230
  Receipt Date: 20101223
  Transmission Date: 20110411
  Serious: No
  Sender: FDA-Public Use
  Company Number: NL-ABBOTT-10P-114-0673785-00

PATIENT
  Sex: Female
  Weight: 78 kg

DRUGS (11)
  1. HUMIRA [Suspect]
     Indication: RHEUMATOID ARTHRITIS
     Dates: start: 20100906
  2. CALCIUM CARBONATE W/COLECALCIFEROL [Concomitant]
     Indication: OSTEOPOROSIS PROPHYLAXIS
     Dosage: 1.25 G/400 IU
     Route: 048
     Dates: start: 20060101
  3. ESOMEPRAZOLE MAGNESIUM [Concomitant]
     Indication: GASTRIC DISORDER
     Route: 048
     Dates: start: 20050101
  4. ESOMEPRAZOLE MAGNESIUM [Concomitant]
     Indication: PROPHYLAXIS
  5. ETHINYLESTRADIOL/LEVONOR GASTREL [Concomitant]
     Indication: CONTRACEPTION
     Dosage: 30/150 MCG
     Route: 048
  6. HYDROCHLOROTHIAZIDE [Concomitant]
     Indication: HYPERTENSION
     Route: 048
     Dates: start: 20040101
  7. LEVOTHYROXINE [Concomitant]
     Indication: HYPOTHYROIDISM
     Dosage: 1/2 DOSES, 1 DAILY
     Route: 048
     Dates: start: 19990101
  8. MELOXICAM [Concomitant]
     Indication: RHEUMATOID ARTHRITIS
     Dates: start: 20100301
  9. OXAZEPAM [Concomitant]
     Indication: ANXIOLYTIC THERAPY
     Dosage: MAX. 1 TAB PER DAY IF NEEDED
     Dates: start: 20070101
  10. PREDNISOLONE [Concomitant]
     Indication: RHEUMATOID ARTHRITIS
     Dates: start: 19890101
  11. RISEDRONIC ACID [Concomitant]
     Indication: OSTEOPOROSIS PROPHYLAXIS
     Dates: start: 20060101

REACTIONS (1)
  - PANIC ATTACK [None]
